FAERS Safety Report 12555344 (Version 1)
Quarter: 2016Q3

REPORT INFORMATION
  Report Type: Spontaneous
  Country: US (occurrence: US)
  Receive Date: 20160714
  Receipt Date: 20160714
  Transmission Date: 20161109
  Serious: Yes (Death)
  Sender: FDA-Public Use
  Company Number: US-ROCHE-1794131

PATIENT
  Age: 69 Year
  Sex: Male

DRUGS (1)
  1. ZELBORAF [Suspect]
     Active Substance: VEMURAFENIB
     Indication: NEOPLASM MALIGNANT
     Dosage: WITH WATER AND DO NOT CRUSH
     Route: 048
     Dates: start: 20151125, end: 20160702

REACTIONS (1)
  - Death [Fatal]

NARRATIVE: CASE EVENT DATE: 20160702
